FAERS Safety Report 7059674 (Version 2)
Quarter: 2012Q4

REPORT INFORMATION
  Report Type: 
  Country: GB (occurrence: GB)
  Receive Date: 20011228
  Receipt Date: 20121213
  Transmission Date: 20130627
  Serious: Yes (Life-Threatening, Hospitalization, Other)
  Sender: FDA-Public Use
  Company Number: PHFR2001GB03449

PATIENT
  Age: 34 Year
  Sex: Male

DRUGS (4)
  1. DICLOFENAC [Suspect]
     Indication: BACK PAIN
     Route: 048
  2. IBUPROFEN [Suspect]
     Indication: BACK PAIN
     Route: 048
  3. NOLOTIL /SPA/ [Suspect]
     Indication: BACK PAIN
  4. PARACETAMOL [Concomitant]
     Indication: BACK PAIN
     Route: 048

REACTIONS (4)
  - Streptococcal sepsis [Recovered/Resolved]
  - Lymphocyte count increased [Recovering/Resolving]
  - Agranulocytosis [Recovered/Resolved]
  - Necrosis [Unknown]
